FAERS Safety Report 13032189 (Version 1)
Quarter: 2016Q4

REPORT INFORMATION
  Report Type: Spontaneous
  Country: US (occurrence: US)
  Receive Date: 20161215
  Receipt Date: 20161215
  Transmission Date: 20170207
  Serious: Yes (Life-Threatening)
  Sender: FDA-Public Use
  Company Number: US-PFIZER INC-2016574656

PATIENT
  Age: 65 Year
  Sex: Female

DRUGS (1)
  1. BENZOCAINE. [Suspect]
     Active Substance: BENZOCAINE
     Indication: LOCAL ANAESTHESIA
     Dosage: UNK
     Route: 061

REACTIONS (2)
  - Methaemoglobinaemia [Recovering/Resolving]
  - Respiratory failure [Recovering/Resolving]
